FAERS Safety Report 7073512-2 (Version None)
Quarter: 2010Q4

REPORT INFORMATION
  Report Type: 
  Country: None (occurrence: None)
  Receive Date: 20101029
  Receipt Date: 20100630
  Transmission Date: 20110411
  Serious: No
  Sender: FDA-Public Use
  Company Number: A0867929A

PATIENT
  Sex: Male

DRUGS (2)
  1. ADVAIR DISKUS 100/50 [Suspect]
  2. SINGULAIR [Concomitant]

REACTIONS (3)
  - CONDITION AGGRAVATED [None]
  - NAUSEA [None]
  - WHEEZING [None]
